FAERS Safety Report 9642703 (Version 6)
Quarter: 2014Q3

REPORT INFORMATION
  Report Type: Spontaneous
  Country: JP (occurrence: JP)
  Receive Date: 20131024
  Receipt Date: 20140905
  Transmission Date: 20150326
  Serious: Yes (Hospitalization, Other)
  Sender: FDA-Public Use
  Company Number: JP-SANOFI-AVENTIS-2013SA011240

PATIENT
  Age: 64 Year
  Sex: Male
  Weight: 69 kg

DRUGS (35)
  1. INSULIN GLARGINE [Suspect]
     Active Substance: INSULIN GLARGINE
     Indication: TYPE 2 DIABETES MELLITUS
     Dosage: DOSE:73.5 UNIT(S)
     Route: 058
     Dates: start: 20121105, end: 20121108
  2. FRANDOL [Concomitant]
     Active Substance: ISOSORBIDE DINITRATE
     Indication: CARDIAC DISORDER
     Dosage: STRENGTH : 40MG (TAPE)
     Route: 062
     Dates: start: 20110209
  3. KETOPROFEN. [Concomitant]
     Active Substance: KETOPROFEN
     Indication: ANAESTHESIA
     Route: 062
     Dates: start: 20110406
  4. AMARYL [Suspect]
     Active Substance: GLIMEPIRIDE
     Indication: TYPE 2 DIABETES MELLITUS
     Route: 048
     Dates: start: 20130206
  5. INSULIN GLARGINE [Suspect]
     Active Substance: INSULIN GLARGINE
     Indication: TYPE 2 DIABETES MELLITUS
     Dosage: DOSE:66 UNIT(S)
     Route: 058
     Dates: start: 20121015, end: 20121021
  6. INSULIN GLARGINE [Suspect]
     Active Substance: INSULIN GLARGINE
     Indication: TYPE 2 DIABETES MELLITUS
     Dosage: DOSE:69 UNIT(S)
     Route: 058
     Dates: start: 20121022, end: 20121028
  7. INSULIN GLARGINE [Suspect]
     Active Substance: INSULIN GLARGINE
     Indication: TYPE 2 DIABETES MELLITUS
     Dosage: DOSE:40.5 UNIT(S)
     Route: 058
     Dates: start: 20130918, end: 20130924
  8. TAKEPRON OD [Concomitant]
     Active Substance: LANSOPRAZOLE
     Indication: PROPHYLAXIS
     Route: 048
     Dates: start: 20080320
  9. NITRODERM [Concomitant]
     Active Substance: NITROGLYCERIN
     Indication: ANGIOPATHY
     Route: 062
     Dates: start: 20130925
  10. AMARYL [Suspect]
     Active Substance: GLIMEPIRIDE
     Indication: TYPE 2 DIABETES MELLITUS
     Route: 048
     Dates: start: 20110309, end: 20130205
  11. INSULIN GLARGINE [Suspect]
     Active Substance: INSULIN GLARGINE
     Indication: TYPE 2 DIABETES MELLITUS
     Dosage: DOSE:64.5 UNIT(S)
     Route: 058
     Dates: start: 20121210
  12. INSULIN GLARGINE [Suspect]
     Active Substance: INSULIN GLARGINE
     Indication: TYPE 2 DIABETES MELLITUS
     Dosage: DOSE:70.5 UNIT(S)
     Route: 058
     Dates: start: 20121029, end: 20121104
  13. INSULIN GLARGINE [Suspect]
     Active Substance: INSULIN GLARGINE
     Indication: TYPE 2 DIABETES MELLITUS
     Dosage: DOSE:39 UNIT(S)
     Route: 058
     Dates: start: 20130812
  14. LOXONIN [Concomitant]
     Active Substance: LOXOPROFEN SODIUM
     Indication: ANAESTHESIA
     Route: 048
     Dates: start: 20120725
  15. MUCOSTA [Concomitant]
     Active Substance: REBAMIPIDE
     Indication: PROPHYLAXIS
     Route: 048
     Dates: start: 20120725
  16. CILOSTAZOL. [Concomitant]
     Active Substance: CILOSTAZOL
     Indication: HAEMOSTASIS
     Route: 048
     Dates: start: 20080320
  17. PLAVIX [Concomitant]
     Active Substance: CLOPIDOGREL BISULFATE
     Indication: HAEMOSTASIS
     Route: 048
     Dates: start: 20080320
  18. SOLOSTAR [Concomitant]
     Active Substance: DEVICE
     Dates: start: 20130925
  19. INSULIN GLARGINE [Suspect]
     Active Substance: INSULIN GLARGINE
     Indication: TYPE 2 DIABETES MELLITUS
     Dosage: DOSE:60 UNIT(S)
     Route: 065
     Dates: start: 20121001, end: 20121008
  20. NORSPAN [Concomitant]
     Active Substance: BUPRENORPHINE
     Indication: ANAESTHESIA
     Route: 062
     Dates: start: 20121029
  21. NITROPEN [Concomitant]
     Active Substance: NITROGLYCERIN
     Indication: CARDIAC DISORDER
     Dosage: STRENGTH:0.3 MG
     Route: 060
     Dates: start: 20111216
  22. CILOSTAZOL. [Concomitant]
     Active Substance: CILOSTAZOL
     Indication: HAEMOSTASIS
     Route: 048
     Dates: start: 20080320
  23. LANTUS SOLOSTAR [Suspect]
     Active Substance: INSULIN GLARGINE
     Indication: TYPE 2 DIABETES MELLITUS
     Dosage: DOSE:40 UNIT(S)
     Route: 058
     Dates: start: 20130925
  24. INSULIN GLARGINE [Suspect]
     Active Substance: INSULIN GLARGINE
     Indication: TYPE 2 DIABETES MELLITUS
     Dosage: DOSE:34.5 UNIT(S)
     Route: 058
     Dates: start: 20130225
  25. BLOPRESS [Concomitant]
     Active Substance: CANDESARTAN CILEXETIL
     Indication: ANGIOPATHY
     Route: 048
     Dates: start: 20080320
  26. LOXOPROFEN [Concomitant]
     Active Substance: LOXOPROFEN
     Indication: ANAESTHESIA
     Route: 048
     Dates: start: 20120725
  27. INSULIN GLARGINE [Suspect]
     Active Substance: INSULIN GLARGINE
     Indication: TYPE 2 DIABETES MELLITUS
     Dosage: DOSE:63 UNIT(S)
     Route: 058
     Dates: start: 20121009, end: 20121014
  28. INSULIN GLARGINE [Suspect]
     Active Substance: INSULIN GLARGINE
     Indication: TYPE 2 DIABETES MELLITUS
     Dosage: DOSE:66 UNIT(S)
     Route: 058
     Dates: start: 20130121
  29. LIPITOR [Concomitant]
     Active Substance: ATORVASTATIN CALCIUM
     Indication: LIPIDS
     Route: 048
     Dates: start: 20080320
  30. SIGMART [Concomitant]
     Active Substance: NICORANDIL
     Indication: CARDIAC DISORDER
     Route: 048
     Dates: start: 20080320
  31. ARTIST [Concomitant]
     Active Substance: CARVEDILOL
     Indication: CARDIAC DISORDER
     Route: 048
     Dates: start: 20130405
  32. INSULIN GLARGINE [Suspect]
     Active Substance: INSULIN GLARGINE
     Indication: TYPE 2 DIABETES MELLITUS
     Dosage: DOSE:70.5 UNIT(S)
     Route: 058
     Dates: start: 20121109, end: 20121202
  33. INSULIN GLARGINE [Suspect]
     Active Substance: INSULIN GLARGINE
     Indication: TYPE 2 DIABETES MELLITUS
     Dosage: DOSE:67.5 UNIT(S)
     Route: 058
     Dates: start: 20121203, end: 20121209
  34. BAYASPIRIN [Concomitant]
     Active Substance: ASPIRIN
     Indication: HAEMOSTASIS
     Route: 048
     Dates: start: 20080320
  35. MOHRUS [Concomitant]
     Active Substance: KETOPROFEN
     Indication: ANAESTHESIA
     Route: 062
     Dates: start: 20110406

REACTIONS (4)
  - Hypoglycaemia [Recovered/Resolved]
  - Hypoglycaemia [Recovered/Resolved]
  - Coronary artery stenosis [Recovered/Resolved]
  - Loss of consciousness [Recovered/Resolved]

NARRATIVE: CASE EVENT DATE: 20121109
